FAERS Safety Report 7075204-2 (Version None)
Quarter: 2010Q4

REPORT INFORMATION
  Report Type: 
  Country: None (occurrence: None)
  Receive Date: 20101030
  Receipt Date: 20100421
  Transmission Date: 20110411
  Serious: No
  Sender: FDA-Public Use
  Company Number: US-WYE-H14823710

PATIENT
  Age: 36 Year
  Sex: Male

DRUGS (4)
  1. ALAVERT [Suspect]
  2. CELEXA [Concomitant]
  3. BUSPAR [Concomitant]
  4. XANAX [Concomitant]

REACTIONS (2)
  - RASH PRURITIC [None]
  - URTICARIA [None]
